FAERS Safety Report 16836478 (Version 2)
Quarter: 2019Q3

REPORT INFORMATION
  Report Type: Spontaneous
  Country: FR (occurrence: FR)
  Receive Date: 20190921
  Receipt Date: 20190930
  Transmission Date: 20191005
  Serious: Yes (Hospitalization, Other)
  Sender: FDA-Public Use
  Company Number: FR-AUROBINDO-AUR-APL-2019-060875

PATIENT
  Age: 77 Year
  Sex: Female
  Weight: 42 kg

DRUGS (7)
  1. FUROSEMIDE. [Suspect]
     Active Substance: FUROSEMIDE
     Indication: PRODUCT USED FOR UNKNOWN INDICATION
     Dosage: 40 MILLIGRAM, ONCE A DAY
     Route: 048
  2. HYDREA [Suspect]
     Active Substance: HYDROXYUREA
     Indication: ESSENTIAL THROMBOCYTHAEMIA
     Dosage: 500 MILLIGRAM, ONCE A DAY
     Route: 048
     Dates: start: 2005
  3. SERTRALINE [Suspect]
     Active Substance: SERTRALINE HYDROCHLORIDE
     Indication: PRODUCT USED FOR UNKNOWN INDICATION
     Dosage: 25 MILLIGRAM, ONCE A DAY
     Route: 048
  4. SOTALOL. [Suspect]
     Active Substance: SOTALOL
     Indication: PRODUCT USED FOR UNKNOWN INDICATION
     Dosage: 80 MILLIGRAM, ONCE A DAY
     Route: 048
  5. ELIQUIS [Suspect]
     Active Substance: APIXABAN
     Indication: CEREBROVASCULAR ACCIDENT PROPHYLAXIS
  6. ELIQUIS [Suspect]
     Active Substance: APIXABAN
     Indication: ATRIAL FIBRILLATION
     Dosage: 10 MILLIGRAM, ONCE A DAY
     Route: 048
  7. CLAMOXYL [AMOXICILLIN SODIUM] [Suspect]
     Active Substance: AMOXICILLIN SODIUM
     Indication: LOCALISED INFECTION
     Dosage: UNK
     Route: 065

REACTIONS (4)
  - Vomiting [Unknown]
  - Erythromelalgia [Not Recovered/Not Resolved]
  - Localised infection [Unknown]
  - Nausea [Unknown]

NARRATIVE: CASE EVENT DATE: 20190810
